FAERS Safety Report 24841358 (Version 1)
Quarter: 2025Q1

REPORT INFORMATION
  Report Type: Spontaneous
  Country: CN (occurrence: CN)
  Receive Date: 20250114
  Receipt Date: 20250114
  Transmission Date: 20250408
  Serious: Yes (Other)
  Sender: PURDUE
  Company Number: CN-NAPPMUNDI-GBR-2025-0122713

PATIENT
  Age: 78 Year
  Sex: Male
  Weight: 47 kg

DRUGS (1)
  1. OXYCODONE HYDROCHLORIDE [Suspect]
     Active Substance: OXYCODONE HYDROCHLORIDE
     Indication: Tumour pain
     Dosage: 20 MILLIGRAM, Q12H
     Route: 048
     Dates: start: 20241228, end: 20250101

REACTIONS (3)
  - Somnolence [Recovering/Resolving]
  - Oxygen saturation decreased [Recovering/Resolving]
  - Overdose [Recovering/Resolving]

NARRATIVE: CASE EVENT DATE: 20250101
